FAERS Safety Report 6437152-8 (Version None)
Quarter: 2009Q4

REPORT INFORMATION
  Report Type: 
  Country: None (occurrence: None)
  Receive Date: 20091112
  Receipt Date: 20091102
  Transmission Date: 20100525
  Serious: Yes (Hospitalization)
  Sender: FDA-Public Use
  Company Number: US-ELI_LILLY_AND_COMPANY-US200909005961

PATIENT
  Sex: Female

DRUGS (6)
  1. FORTEO [Suspect]
     Dosage: UNK, UNK
     Dates: start: 20090701, end: 20090901
  2. DIOVAN                                  /SCH/ [Concomitant]
     Dosage: 80 MG, DAILY (1/D)
  3. LEVOTHYROXINE [Concomitant]
     Dosage: 50 UG, DAILY (1/D)
  4. ASPIRIN [Concomitant]
     Dosage: 81 MG, UNK
  5. NAMENDA [Concomitant]
  6. MIACALCIN [Concomitant]

REACTIONS (1)
  - HYPERCALCAEMIA [None]
